FAERS Safety Report 15966933 (Version 1)
Quarter: 2019Q1

REPORT INFORMATION
  Report Type: Spontaneous
  Country: DE (occurrence: DE)
  Receive Date: 20190215
  Receipt Date: 20190215
  Transmission Date: 20190418
  Serious: Yes (Other)
  Sender: FDA-Public Use
  Company Number: DE-MYLANLABS-2019M1012876

PATIENT
  Age: 32 Year
  Sex: Male

DRUGS (4)
  1. AZATHIOPRINE. [Suspect]
     Active Substance: AZATHIOPRINE
     Indication: PRODUCT USED FOR UNKNOWN INDICATION
     Dosage: 400 MILLIGRAM(FOR 1 YEAR)
     Route: 065
  2. AZATHIOPRINE. [Suspect]
     Active Substance: AZATHIOPRINE
     Dosage: 100 MILLIGRAM(FOR 1 YEAR)
     Route: 065
  3. AZATHIOPRINE. [Suspect]
     Active Substance: AZATHIOPRINE
     Dosage: 300 MILLIGRAM(FOR 2 YEARS)
  4. AZATHIOPRINE. [Suspect]
     Active Substance: AZATHIOPRINE
     Dosage: 50 MILLIGRAM(TAPERED THE DOSAGE)

REACTIONS (6)
  - Liver function test abnormal [Recovering/Resolving]
  - Depression [Recovering/Resolving]
  - Toothache [Not Recovered/Not Resolved]
  - Alopecia [Recovered/Resolved]
  - Tooth loss [Not Recovered/Not Resolved]
  - Photophobia [Recovered/Resolved]
